FAERS Safety Report 7418947-0 (Version None)
Quarter: 2011Q2

REPORT INFORMATION
  Report Type: 
  Country: None (occurrence: None)
  Receive Date: 20110415
  Receipt Date: 20110413
  Transmission Date: 20111010
  Serious: Yes (Other)
  Sender: FDA-Public Use
  Company Number: US-BAYER-2011-032291

PATIENT
  Sex: Female

DRUGS (2)
  1. YASMIN [Suspect]
     Dosage: UNK
     Dates: start: 20070301, end: 20080801
  2. OCELLA [Suspect]
     Dosage: UNK
     Dates: start: 20080801, end: 20091201

REACTIONS (1)
  - GALLBLADDER INJURY [None]
